FAERS Safety Report 7020215-6 (Version None)
Quarter: 2010Q3

REPORT INFORMATION
  Report Type: 
  Country: None (occurrence: None)
  Receive Date: 20100929
  Receipt Date: 20100920
  Transmission Date: 20110219
  Serious: No
  Sender: FDA-Public Use
  Company Number: PHHY2010US62496

PATIENT
  Sex: Male

DRUGS (7)
  1. TASIGNA [Suspect]
     Indication: NEOPLASM
     Dosage: 400 MG, BID
     Route: 048
     Dates: start: 20080708
  2. ALEVE (CAPLET) [Concomitant]
  3. IMODIUM [Concomitant]
  4. ASPIRIN [Concomitant]
  5. ALLOPURINOL [Concomitant]
  6. BENADRYL [Concomitant]
  7. NEXIUM [Concomitant]

REACTIONS (1)
  - LABELLED DRUG-FOOD INTERACTION MEDICATION ERROR [None]
